FAERS Safety Report 4871666-7 (Version None)
Quarter: 2006Q1

REPORT INFORMATION
  Report Type: 
  Country: None (occurrence: None)
  Receive Date: 20060104
  Receipt Date: 20051228
  Transmission Date: 20060701
  Serious: Yes (Other)
  Sender: FDA-Public Use
  Company Number: PHNU2005DE04273

PATIENT
  Sex: Male

DRUGS (3)
  1. NEORAL [Suspect]
     Indication: UVEITIS
  2. CORTISONE ACETATE TAB [Concomitant]
  3. SANDIMMUNE [Suspect]
     Indication: UVEITIS

REACTIONS (1)
  - EYE OEDEMA [None]
